FAERS Safety Report 5709992-1 (Version None)
Quarter: 2008Q2

REPORT INFORMATION
  Report Type: 
  Country: None (occurrence: None)
  Receive Date: 20080418
  Receipt Date: 20070802
  Transmission Date: 20081010
  Serious: No
  Sender: FDA-Public Use
  Company Number: US-ASTRAZENECA-2007UW18549

PATIENT
  Age: 71 Year
  Sex: Male
  Weight: 104.3 kg

DRUGS (7)
  1. TOPROL-XL [Suspect]
     Indication: HYPERTENSION
     Route: 048
  2. TOPROL-XL [Suspect]
     Route: 048
  3. CRESTOR [Concomitant]
     Route: 048
  4. LISINOPRIL [Concomitant]
     Route: 048
  5. DIGITEK [Concomitant]
  6. METFORMIN HCL [Concomitant]
  7. COUMADIN [Concomitant]

REACTIONS (2)
  - PALLOR [None]
  - SENSORY LOSS [None]
